FAERS Safety Report 5072689-8 (Version None)
Quarter: 2006Q3

REPORT INFORMATION
  Report Type: 
  Country: None (occurrence: None)
  Receive Date: 20060807
  Receipt Date: 20060728
  Transmission Date: 20061208
  Serious: Yes (Other)
  Sender: FDA-Public Use
  Company Number: US-ROCHE-457689

PATIENT
  Age: 84 Year
  Sex: Female

DRUGS (2)
  1. BONIVA [Suspect]
     Indication: OSTEOPOROSIS
     Route: 048
     Dates: start: 20051201, end: 20060601
  2. THYROID TAB [Concomitant]
     Route: 048

REACTIONS (1)
  - CHOLELITHIASIS [None]
